FAERS Safety Report 8229203-5 (Version None)
Quarter: 2012Q1

REPORT INFORMATION
  Report Type: 
  Country: None (occurrence: None)
  Receive Date: 20120322
  Receipt Date: 20120315
  Transmission Date: 20120608
  Serious: Yes (Other)
  Sender: FDA-Public Use
  Company Number: JP-BRISTOL-MYERS SQUIBB COMPANY-16466344

PATIENT
  Age: 7 Decade
  Sex: Female

DRUGS (1)
  1. KENACORT [Suspect]

REACTIONS (1)
  - CORONARY ARTERY STENOSIS [None]
